FAERS Safety Report 23548477 (Version 1)
Quarter: 2024Q1

REPORT INFORMATION
  Report Type: Spontaneous
  Country: US (occurrence: None)
  Receive Date: 20240219
  Receipt Date: 20240219
  Transmission Date: 20240409
  Serious: Yes (Life-Threatening, Disabling, Other)
  Sender: FDA-Public Use
  Company Number: None

PATIENT
  Age: 54 Year
  Sex: Female
  Weight: 128.25 kg

DRUGS (18)
  1. AUSTEDO XR [Suspect]
     Active Substance: DEUTETRABENAZINE
     Indication: Tardive dyskinesia
     Route: 048
     Dates: start: 20230909, end: 20230922
  2. REXULTI [Suspect]
     Active Substance: BREXPIPRAZOLE
  3. HUMIRA [Concomitant]
     Active Substance: ADALIMUMAB
  4. ALBUTEROL [Concomitant]
     Active Substance: ALBUTEROL
  5. SYMBICORT [Concomitant]
     Active Substance: BUDESONIDE\FORMOTEROL FUMARATE DIHYDRATE
  6. LEVOTHYROXINE [Concomitant]
     Active Substance: LEVOTHYROXINE\LEVOTHYROXINE SODIUM
  7. ROPINIROLE [Concomitant]
     Active Substance: ROPINIROLE
  8. DULOXETINE [Concomitant]
     Active Substance: DULOXETINE
  9. CLONAZEPAM [Concomitant]
     Active Substance: CLONAZEPAM
  10. GABAPENTIN [Concomitant]
     Active Substance: GABAPENTIN
  11. BUPROPION [Concomitant]
     Active Substance: BUPROPION
  12. Triamcinolone Acetonide Cream .1% [Concomitant]
  13. Multivitamin w/Iron [Concomitant]
  14. VITAMIN B-COMPLEX [Concomitant]
     Active Substance: DEXPANTHENOL\NIACINAMIDE\PYRIDOXINE HYDROCHLORIDE\RIBOFLAVIN 5^-PHOSPHATE SODIUM\THIAMINE HYDROCHLOR
  15. VITAMIN D3 [Concomitant]
     Active Substance: CHOLECALCIFEROL
  16. BIOTIN [Concomitant]
     Active Substance: BIOTIN
  17. VITAMIN B12 [Concomitant]
     Active Substance: CYANOCOBALAMIN
  18. CALCIUM [Concomitant]
     Active Substance: CALCIUM

REACTIONS (4)
  - Suicidal ideation [None]
  - Depression [None]
  - Tardive dyskinesia [None]
  - Therapy cessation [None]

NARRATIVE: CASE EVENT DATE: 20230922
